FAERS Safety Report 6941651-X (Version None)
Quarter: 2010Q3

REPORT INFORMATION
  Report Type: 
  Country: None (occurrence: None)
  Receive Date: 20100825
  Receipt Date: 20100816
  Transmission Date: 20110219
  Serious: Yes (Disabling, Other)
  Sender: FDA-Public Use
  Company Number: US-JNJFOC-20100805451

PATIENT
  Sex: Female

DRUGS (2)
  1. REMICADE [Suspect]
     Indication: ARTHRITIS
     Route: 042
  2. CELEBREX [Concomitant]

REACTIONS (9)
  - CENTRAL NERVOUS SYSTEM LESION [None]
  - CEREBRAL HAEMATOMA [None]
  - CEREBRAL HAEMORRHAGE [None]
  - DISABILITY [None]
  - FALL [None]
  - NERVOUS SYSTEM DISORDER [None]
  - PARALYSIS [None]
  - RASH [None]
  - SPINAL CORD DISORDER [None]
